FAERS Safety Report 21556096 (Version 1)
Quarter: 2022Q4

REPORT INFORMATION
  Report Type: Spontaneous
  Country: US (occurrence: None)
  Receive Date: 20221104
  Receipt Date: 20221104
  Transmission Date: 20230112
  Serious: Yes (Hospitalization)
  Sender: FDA-Public Use
  Company Number: 2022A362154

PATIENT
  Age: 65 Year
  Sex: Male

DRUGS (6)
  1. OMEPRAZOLE [Suspect]
     Active Substance: OMEPRAZOLE
     Route: 048
  2. HYDROCHLOROTHIAZIDE\TRIAMTERENE [Suspect]
     Active Substance: HYDROCHLOROTHIAZIDE\TRIAMTERENE
     Route: 065
  3. ATORVASTATIN [Suspect]
     Active Substance: ATORVASTATIN
     Route: 065
  4. VITAMINS [Concomitant]
     Active Substance: VITAMINS
     Route: 065
  5. ACETAMINOPHEN [Concomitant]
     Active Substance: ACETAMINOPHEN
     Route: 065
  6. IRON [Concomitant]
     Active Substance: IRON
     Route: 065

REACTIONS (1)
  - Vanishing bile duct syndrome [Recovering/Resolving]
